FAERS Safety Report 7265540-9 (Version None)
Quarter: 2011Q1

REPORT INFORMATION
  Report Type: 
  Country: None (occurrence: None)
  Receive Date: 20110131
  Receipt Date: 20110128
  Transmission Date: 20110831
  Serious: Yes (Other)
  Sender: FDA-Public Use
  Company Number: A0910168A

PATIENT
  Age: 41 Year
  Sex: Female

DRUGS (1)
  1. ALLI [Suspect]
     Indication: WEIGHT LOSS DIET
     Route: 048

REACTIONS (5)
  - ANAEMIA [None]
  - OLIGOMENORRHOEA [None]
  - WEIGHT DECREASED [None]
  - DRUG INEFFECTIVE [None]
  - MENORRHAGIA [None]
